FAERS Safety Report 4918727-1 (Version None)
Quarter: 2006Q1

REPORT INFORMATION
  Report Type: 
  Country: None (occurrence: None)
  Receive Date: 20060221
  Receipt Date: 20060221
  Transmission Date: 20060701
  Serious: Yes (Other)
  Sender: FDA-Public Use
  Company Number: None

PATIENT
  Age: 76 Year
  Sex: Male
  Weight: 80 kg

DRUGS (1)
  1. LYRICA [Suspect]
     Indication: HERPES ZOSTER
     Dosage: 50 MG  TID  PO
     Route: 048
     Dates: start: 20060216, end: 20060218

REACTIONS (4)
  - ASTERIXIS [None]
  - DYSKINESIA [None]
  - IRRITABILITY [None]
  - NEUROMYOPATHY [None]
